FAERS Safety Report 18793664 (Version 7)
Quarter: 2021Q3

REPORT INFORMATION
  Report Type: Report from Study
  Country: GB (occurrence: GB)
  Receive Date: 20210127
  Receipt Date: 20210917
  Transmission Date: 20211014
  Serious: Yes (Hospitalization)
  Sender: FDA-Public Use
  Company Number: GB-GLAXOSMITHKLINE-GB2020GSK239107

PATIENT
  Age: 65 Year
  Sex: Female
  Weight: 79.8 kg

DRUGS (11)
  1. BELANTAMAB MAFODOTIN. [Suspect]
     Active Substance: BELANTAMAB MAFODOTIN
     Indication: PLASMA CELL MYELOMA
     Dosage: 195 MG, CYC
     Route: 042
     Dates: start: 20201130, end: 20201130
  2. METFORMIN [Concomitant]
     Active Substance: METFORMIN HYDROCHLORIDE
     Indication: TYPE 2 DIABETES MELLITUS
     Dosage: 500 MG, BID
     Route: 048
     Dates: start: 2006
  3. HYPROMELLOSE EYE DROP [Concomitant]
     Indication: EYE PAIN
  4. FLUOROMETHOLONE. [Concomitant]
     Active Substance: FLUOROMETHOLONE
     Indication: DRY EYE
     Dosage: 1 GTT, QID
     Route: 047
     Dates: start: 20210121
  5. HYPROMELLOSE EYE DROP [Concomitant]
     Indication: DRY EYE
     Dosage: 1 GTT, Q4D
     Route: 047
     Dates: start: 20201130
  6. CHLORPHENAMINE [Concomitant]
     Active Substance: CHLORPHENIRAMINE MALEATE
     Indication: PROPHYLAXIS
     Dosage: 10 MG, SINGLE
     Route: 042
     Dates: start: 20210618, end: 20210618
  7. HYDROMOOR [Concomitant]
     Indication: PROPHYLAXIS
     Dosage: 6 GTT, QD
     Route: 047
     Dates: start: 20210121
  8. VISUXL GEL [Concomitant]
     Indication: PROPHYLAXIS
     Dosage: 1 GTT, ONCE
     Route: 047
     Dates: start: 20210108
  9. INHIXA (ENOXAPARIN) [Concomitant]
     Indication: EMBOLISM
     Dosage: 4000 IU, QD
     Route: 058
     Dates: start: 2019
  10. VITAMIN C [Concomitant]
     Active Substance: ASCORBIC ACID
     Indication: VITAMIN SUPPLEMENTATION
     Dosage: 1 G, QD
     Route: 048
     Dates: start: 202005
  11. XAILIN HA EYE DROPS [Concomitant]
     Indication: EYE LUBRICATION THERAPY
     Dosage: 1 GTT, QID
     Route: 047
     Dates: start: 2018, end: 20201130

REACTIONS (1)
  - Urinary tract infection [Recovered/Resolved]

NARRATIVE: CASE EVENT DATE: 20201201
